FAERS Safety Report 8152200-5 (Version None)
Quarter: 2012Q1

REPORT INFORMATION
  Report Type: 
  Country: None (occurrence: None)
  Receive Date: 20120214
  Receipt Date: 20120203
  Transmission Date: 20120608
  Serious: No
  Sender: FDA-Public Use
  Company Number: 2007JP003928

PATIENT
  Age: 6 Year
  Sex: Male
  Weight: 24.6 kg

DRUGS (11)
  1. ZADITEN (KETOTIFEN FUMARATE) SYRUP [Concomitant]
  2. RINDERON VG (BETAMETHASONE VALERATE, GENTAMICIN SULFATE) LOTION [Concomitant]
  3. EBASTEL (EBASTEL) ORODISPERSIBLE CR TABLET [Concomitant]
  4. ATARAX-P (HYDROXYZINE HYDROCHLORIDE) SYRUP [Concomitant]
  5. LIDOMEX (PREDNISOLONE VALEROACETATE) LOTION [Concomitant]
  6. METHADERM (DEXAMETHASONE DIPROPIONATE) OINTMENT [Concomitant]
  7. PROTOPIC [Suspect]
     Indication: DERMATITIS ATOPIC
     Dosage: 0.03 %, TOPICAL
     Route: 061
     Dates: start: 20051213
  8. PROPETO (WHITE SOFT PARAFFIN) OINTMENT [Concomitant]
  9. KERATINAMIN (UREA) OINTMENT [Concomitant]
  10. MYSER (DIFLUPREDNATE) OINTMENT [Concomitant]
  11. NERISONE [Concomitant]

REACTIONS (5)
  - HORDEOLUM [None]
  - BLOOD IMMUNOGLOBULIN E INCREASED [None]
  - SKIN PAPILLOMA [None]
  - EOSINOPHIL COUNT INCREASED [None]
  - IMPETIGO [None]
